FAERS Safety Report 9197649 (Version 1)
Quarter: 2013Q1

REPORT INFORMATION
  Report Type: Spontaneous
  Country: US (occurrence: US)
  Receive Date: 20130328
  Receipt Date: 20130328
  Transmission Date: 20140127
  Serious: No
  Sender: FDA-Public Use
  Company Number: US-ASTRAZENECA-2013SE18355

PATIENT
  Age: 92 Year
  Sex: Female
  Weight: 54.9 kg

DRUGS (9)
  1. PULMICORT FLEXHALER [Suspect]
     Indication: SINUS DISORDER
     Dosage: 90 MCG, 2 PUFFS  BID
     Route: 055
     Dates: start: 20130221, end: 201303
  2. LISINOPRIL [Suspect]
     Route: 048
  3. METOPROLOL [Suspect]
     Route: 048
  4. FUROSEMIDE [Concomitant]
  5. ACTONEL [Concomitant]
  6. LIPITOR [Concomitant]
  7. ATROVENT [Concomitant]
  8. TRIAM HCTZ [Concomitant]
  9. SYNTHROID [Concomitant]

REACTIONS (3)
  - Musculoskeletal chest pain [Recovering/Resolving]
  - Pain in extremity [Recovering/Resolving]
  - Off label use [Unknown]
